FAERS Safety Report 5665148-2 (Version None)
Quarter: 2008Q1

REPORT INFORMATION
  Report Type: 
  Country: None (occurrence: None)
  Receive Date: 20080314
  Receipt Date: 20080305
  Transmission Date: 20080703
  Serious: Yes (Other)
  Sender: FDA-Public Use
  Company Number: GB-MERCK-0705GBR00010

PATIENT
  Age: 35 Year
  Sex: Female

DRUGS (8)
  1. PROPECIA [Suspect]
     Route: 065
  2. DIBUCAINE HYDROCHLORIDE AND PREDNISOLONE HEXANOATE [Concomitant]
     Route: 054
  3. FERROUS SULFATE [Concomitant]
     Route: 065
  4. DIBUCAINE HYDROCHLORIDE AND PREDNISOLONE HEXANOATE [Concomitant]
     Route: 061
  5. ACETAMINOPHEN [Concomitant]
     Route: 065
  6. AMOXICILLIN [Concomitant]
     Route: 065
  7. CALCIUM CARBONATE AND SODIUM ALGINATE AND SODIUM BICARBONATE [Concomitant]
     Route: 065
  8. ALUMINUM HYDROXIDE AND MAGNESIUM CARBONATE [Concomitant]
     Route: 065

REACTIONS (4)
  - ADVERSE EVENT [None]
  - DRUG EXPOSURE DURING PREGNANCY [None]
  - TRANSMISSION OF DRUG VIA SEMEN [None]
  - UMBILICAL HERNIA [None]
